FAERS Safety Report 8165474-1 (Version None)
Quarter: 2012Q1

REPORT INFORMATION
  Report Type: 
  Country: None (occurrence: None)
  Receive Date: 20120227
  Receipt Date: 20110816
  Transmission Date: 20120608
  Serious: No
  Sender: FDA-Public Use
  Company Number: US-MYLANLABS-2011S1017325

PATIENT
  Age: 80 Year
  Sex: Male
  Weight: 81.19 kg

DRUGS (4)
  1. METOPROLOL TARTRATE [Suspect]
     Indication: BLOOD PRESSURE
     Route: 048
     Dates: start: 20090101, end: 20110801
  2. CRESTOR [Concomitant]
     Indication: CARDIAC DISORDER
     Dosage: 10 MG MONDAY/THURSDAY
     Dates: start: 20060101
  3. LOPRESSOR [Suspect]
     Indication: BLOOD PRESSURE
     Route: 048
     Dates: start: 20110801
  4. ASPIRIN [Concomitant]
     Indication: CARDIAC DISORDER
     Dates: start: 20060101

REACTIONS (2)
  - PIGMENTATION DISORDER [None]
  - OEDEMA PERIPHERAL [None]
